FAERS Safety Report 5486141-9 (Version None)
Quarter: 2007Q4

REPORT INFORMATION
  Report Type: 
  Country: None (occurrence: None)
  Receive Date: 20071015
  Receipt Date: 20071003
  Transmission Date: 20080405
  Serious: Yes (Hospitalization, Other)
  Sender: FDA-Public Use
  Company Number: US-PFIZER INC-2007073356

PATIENT
  Sex: Female
  Weight: 59 kg

DRUGS (3)
  1. CHANTIX [Suspect]
     Indication: SMOKING CESSATION THERAPY
  2. MONTELUKAST SODIUM [Concomitant]
  3. TIOTROPIUM BROMIDE [Concomitant]

REACTIONS (3)
  - CHEST PAIN [None]
  - DRUG DEPENDENCE [None]
  - GASTROOESOPHAGEAL REFLUX DISEASE [None]
